FAERS Safety Report 13311268 (Version 3)
Quarter: 2021Q2

REPORT INFORMATION
  Report Type: Spontaneous
  Country: US (occurrence: US)
  Receive Date: 20170309
  Receipt Date: 20210601
  Transmission Date: 20210716
  Serious: Yes (Other)
  Sender: FDA-Public Use
  Company Number: US-JNJFOC-20170216607

PATIENT
  Sex: Male

DRUGS (1)
  1. RISPERDAL [Suspect]
     Active Substance: RISPERIDONE
     Indication: PRODUCT USED FOR UNKNOWN INDICATION
     Route: 048
     Dates: start: 20061019, end: 2012

REACTIONS (4)
  - Gynaecomastia [Not Recovered/Not Resolved]
  - Overweight [Unknown]
  - Breast discharge [Recovered/Resolved]
  - Emotional disorder [Unknown]
